FAERS Safety Report 12979318 (Version 2)
Quarter: 2017Q1

REPORT INFORMATION
  Report Type: Spontaneous
  Country: FR (occurrence: FR)
  Receive Date: 20161128
  Receipt Date: 20170117
  Transmission Date: 20170428
  Serious: Yes (Death, Hospitalization, Other)
  Sender: FDA-Public Use
  Company Number: FR-PFIZER INC-2016539483

PATIENT
  Age: 72 Year
  Sex: Male
  Weight: 90 kg

DRUGS (2)
  1. SUTENT [Suspect]
     Active Substance: SUNITINIB MALATE
     Dosage: 25 MG, 2 WEEKS ON 1 WEEK OFF
     Route: 048
     Dates: end: 201610
  2. SUTENT [Suspect]
     Active Substance: SUNITINIB MALATE
     Indication: RENAL CANCER
     Dosage: UNK
     Route: 048
     Dates: start: 201405

REACTIONS (11)
  - Second primary malignancy [Fatal]
  - Thrombocytopenia [Unknown]
  - Palmar-plantar erythrodysaesthesia syndrome [Unknown]
  - Anaemia [Unknown]
  - Nausea [Unknown]
  - Dyspnoea exertional [Unknown]
  - Dyspnoea [Unknown]
  - Asthenia [Unknown]
  - Diarrhoea [Unknown]
  - Muscle spasms [Unknown]
  - Acute megakaryocytic leukaemia [Fatal]

NARRATIVE: CASE EVENT DATE: 201611
